FAERS Safety Report 9168006 (Version 1)
Quarter: 2013Q1

REPORT INFORMATION
  Report Type: Spontaneous
  Country: IN (occurrence: None)
  Receive Date: 20130307
  Receipt Date: 20130307
  Transmission Date: 20140127
  Serious: Yes (Hospitalization)
  Sender: FDA-Public Use
  Company Number: 2013-00655

PATIENT
  Age: 8 Month
  Sex: Female

DRUGS (4)
  1. ETHAMBUTOL [Suspect]
  2. ISONIAZID [Suspect]
  3. RIFAMPICIN [Suspect]
  4. PYRAZINAMIDE [Suspect]

REACTIONS (5)
  - Ill-defined disorder [None]
  - Haemoglobin decreased [None]
  - Lymphadenopathy [None]
  - Lymphadenopathy [None]
  - Necrosis [None]
